FAERS Safety Report 9154766 (Version 1)
Quarter: 2013Q1

REPORT INFORMATION
  Report Type: Spontaneous
  Country: ES (occurrence: ES)
  Receive Date: 20130311
  Receipt Date: 20130311
  Transmission Date: 20140127
  Serious: Yes (Other)
  Sender: FDA-Public Use
  Company Number: ES-009507513-1303ESP003507

PATIENT
  Age: 59 Year
  Sex: Male

DRUGS (3)
  1. VICTRELIS [Suspect]
     Indication: HEPATITIS C
     Dosage: 200 MG, UNK
  2. PEGINTRON [Suspect]
     Indication: HEPATITIS C
     Dosage: UNK
  3. REBETOL [Suspect]
     Indication: HEPATITIS C
     Dosage: 200 MG, UNK

REACTIONS (5)
  - Loss of consciousness [Recovered/Resolved]
  - Platelet count decreased [Not Recovered/Not Resolved]
  - Head injury [Recovering/Resolving]
  - Ocular hyperaemia [Not Recovered/Not Resolved]
  - Eyelid oedema [Not Recovered/Not Resolved]
